FAERS Safety Report 20475258 (Version 1)
Quarter: 2022Q1

REPORT INFORMATION
  Report Type: Spontaneous
  Country: US (occurrence: None)
  Receive Date: 20220214
  Receipt Date: 20220214
  Transmission Date: 20220423
  Serious: No
  Sender: FDA-Public Use
  Company Number: None

PATIENT
  Sex: Female

DRUGS (3)
  1. TEMOZOLOMIDE [Suspect]
     Active Substance: TEMOZOLOMIDE
     Dosage: OTHER FREQUENCY : BID 10-14/28DAYS;?
     Route: 048
  2. TEMOZOLOMIDE [Suspect]
     Active Substance: TEMOZOLOMIDE
     Dosage: OTHER FREQUENCY : BID 10-14/28DAYS;?
     Route: 048
  3. CAPECITABINE 1500MG BID DAYS 1-14 OF 28DAYS [Concomitant]

REACTIONS (1)
  - Platelet count abnormal [None]
